FAERS Safety Report 9727563 (Version 2)
Quarter: 2013Q4

REPORT INFORMATION
  Report Type: Spontaneous
  Country: US (occurrence: US)
  Receive Date: 20131203
  Receipt Date: 20131227
  Transmission Date: 20140711
  Serious: No
  Sender: FDA-Public Use
  Company Number: US-BAXTER-2013BAX046353

PATIENT
  Age: 24 Year
  Sex: Male

DRUGS (8)
  1. GENTAMICIN SULFATE IN 0.9% SODIUM CHLORIDE INJECTION [Suspect]
     Indication: PHARYNGEAL ABSCESS
     Route: 042
     Dates: start: 20131113
  2. GENTAMICIN SULFATE IN 0.9% SODIUM CHLORIDE INJECTION [Suspect]
     Route: 042
     Dates: start: 20131113
  3. GENTAMICIN SULFATE IN 0.9% SODIUM CHLORIDE INJECTION [Suspect]
     Route: 042
     Dates: start: 20131114
  4. GENTAMICIN SULFATE IN 0.9% SODIUM CHLORIDE INJECTION [Suspect]
     Route: 042
     Dates: start: 20131114
  5. 0.9% SODIUM CHLORIDE INJECTION, USP IN MINI-BAG PLUS CONTAINER [Suspect]
     Indication: MEDICATION DILUTION
     Route: 042
     Dates: start: 20131113
  6. 0.9% SODIUM CHLORIDE INJECTION, USP IN MINI-BAG PLUS CONTAINER [Suspect]
     Route: 042
     Dates: start: 20131114
  7. GENTAMICIN [Suspect]
     Indication: PHARYNGEAL ABSCESS
     Route: 042
     Dates: start: 20131113, end: 20131113
  8. GENTAMICIN [Suspect]
     Route: 042
     Dates: start: 20131114

REACTIONS (1)
  - Drug ineffective [Recovered/Resolved]
